FAERS Safety Report 9402729 (Version 1)
Quarter: 2013Q3

REPORT INFORMATION
  Report Type: Spontaneous
  Country: CN (occurrence: CN)
  Receive Date: 20130716
  Receipt Date: 20130716
  Transmission Date: 20140515
  Serious: Yes (Other)
  Sender: FDA-Public Use
  Company Number: CN-BAXTER-2013BAX026548

PATIENT
  Age: 45 Year
  Sex: Male
  Weight: 102 kg

DRUGS (3)
  1. 0.9% SODIUM CHLORIDE INJECTION [Suspect]
     Indication: MEDICATION DILUTION
     Route: 041
     Dates: start: 20121220, end: 20121221
  2. EDARAVONE [Suspect]
     Indication: TRANSIENT ISCHAEMIC ATTACK
     Route: 041
     Dates: start: 20121220, end: 20121221
  3. HYDROXYETHYL STARCH SODIUM CHLORIDE [Suspect]
     Indication: TRANSIENT ISCHAEMIC ATTACK
     Route: 041
     Dates: start: 20121219, end: 20121221

REACTIONS (3)
  - Urticaria [Recovering/Resolving]
  - Periorbital oedema [Recovering/Resolving]
  - Oedema genital [Recovering/Resolving]
